FAERS Safety Report 19224648 (Version 1)
Quarter: 2021Q2

REPORT INFORMATION
  Report Type: Spontaneous
  Country: US (occurrence: US)
  Receive Date: 20210505
  Receipt Date: 20210505
  Transmission Date: 20210717
  Serious: No
  Sender: FDA-Public Use
  Company Number: US-ROCHE-2717656

PATIENT
  Age: 86 Year
  Sex: Male

DRUGS (1)
  1. ESBRIET [Suspect]
     Active Substance: PIRFENIDONE
     Indication: PRODUCT USED FOR UNKNOWN INDICATION
     Dosage: TID 801MG ORAL, ONGOING?YES
     Route: 048
     Dates: start: 201808

REACTIONS (3)
  - Manufacturing product shipping issue [Unknown]
  - No adverse event [Unknown]
  - Product container seal issue [Unknown]

NARRATIVE: CASE EVENT DATE: 20201113
